FAERS Safety Report 16804253 (Version 1)
Quarter: 2019Q3

REPORT INFORMATION
  Report Type: Spontaneous
  Country: KR (occurrence: KR)
  Receive Date: 20190913
  Receipt Date: 20190913
  Transmission Date: 20191005
  Serious: Yes (Hospitalization, Other)
  Sender: FDA-Public Use
  Company Number: KR-ACCORD-154782

PATIENT
  Age: 40 Year
  Sex: Male

DRUGS (1)
  1. LEVETIRACETAM. [Suspect]
     Active Substance: LEVETIRACETAM
     Indication: EPILEPSY
     Dosage: GRADUALLY INCREASED FROM DAILY DOSE OF 750 MG TO 1500 MG AND STOPPED.
     Route: 042

REACTIONS (1)
  - Blood creatine phosphokinase increased [Recovered/Resolved]
